FAERS Safety Report 9925160 (Version 1)
Quarter: 2014Q1

REPORT INFORMATION
  Report Type: Spontaneous
  Country: US (occurrence: None)
  Receive Date: 20140225
  Receipt Date: 20140225
  Transmission Date: 20141002
  Serious: Yes (Other)
  Sender: FDA-Public Use
  Company Number: None

PATIENT
  Age: 67 Year
  Sex: Female
  Weight: 54.43 kg

DRUGS (2)
  1. INDOMETHACIN [Suspect]
     Indication: ARTHRITIS
     Dosage: 2 A DAY TWICE DAILY
     Dates: start: 20140220, end: 20140223
  2. INDOMETHACIN [Suspect]
     Indication: THROMBOSIS
     Dosage: 2 A DAY TWICE DAILY
     Dates: start: 20140220, end: 20140223

REACTIONS (1)
  - Blood pressure increased [None]
